FAERS Safety Report 21680485 (Version 7)
Quarter: 2024Q4

REPORT INFORMATION
  Report Type: Report from Study
  Country: US (occurrence: US)
  Receive Date: 20221205
  Receipt Date: 20241016
  Transmission Date: 20250114
  Serious: Yes (Hospitalization, Other)
  Sender: NOVARTIS
  Company Number: US-002147023-NVSC2022US277510

PATIENT
  Age: 23 Year
  Sex: Female

DRUGS (5)
  1. VIJOICE [Suspect]
     Active Substance: ALPELISIB
     Indication: PIK3CA related overgrowth spectrum
     Dosage: 50 MG, QD
     Route: 048
     Dates: start: 20221103, end: 20230415
  2. VIJOICE [Suspect]
     Active Substance: ALPELISIB
     Dosage: 125 MG, QD
     Route: 065
     Dates: start: 20230415
  3. VIJOICE [Suspect]
     Active Substance: ALPELISIB
     Dosage: 125 MG, QD
     Route: 048
     Dates: start: 20231103
  4. VIJOICE [Suspect]
     Active Substance: ALPELISIB
     Dosage: 50 MG, QD
     Route: 048
  5. MELOXICAM [Concomitant]
     Active Substance: MELOXICAM
     Indication: Product used for unknown indication
     Dosage: UNK
     Route: 065

REACTIONS (11)
  - Dyspnoea [Recovering/Resolving]
  - Hypertensive crisis [Recovering/Resolving]
  - Pneumonia [Recovered/Resolved]
  - Rash [Recovered/Resolved]
  - COVID-19 [Recovering/Resolving]
  - Pain [Unknown]
  - Stress [Unknown]
  - Blood glucose increased [Unknown]
  - Wound [Unknown]
  - Mobility decreased [Unknown]
  - Haemangioma [Recovered/Resolved]

NARRATIVE: CASE EVENT DATE: 20221103
